FAERS Safety Report 19743076 (Version 3)
Quarter: 2021Q4

REPORT INFORMATION
  Report Type: Report from Study
  Country: US (occurrence: US)
  Receive Date: 20210824
  Receipt Date: 20211108
  Transmission Date: 20220304
  Serious: Yes (Hospitalization)
  Sender: FDA-Public Use
  Company Number: US-SEATTLE GENETICS-2021SGN04347

PATIENT
  Age: 76 Year
  Sex: Male
  Weight: 117.6 kg

DRUGS (13)
  1. TUCATINIB [Suspect]
     Active Substance: TUCATINIB
     Indication: Non-small cell lung cancer
     Dosage: 300 MG, BID, DAYS 1 TO 21 OF EACH 21-DAY CYCLE
     Route: 048
     Dates: start: 20210611, end: 20210817
  2. TRASTUZUMAB [Suspect]
     Active Substance: TRASTUZUMAB
     Indication: Non-small cell lung cancer
     Dosage: 900 MG, DAY 1 OF CYCLE 1
     Route: 042
     Dates: start: 20210611
  3. TRASTUZUMAB [Suspect]
     Active Substance: TRASTUZUMAB
     Dosage: 6 MG/KG, Q3WEEKS
     Route: 042
     Dates: end: 20210813
  4. ASPIRIN [Concomitant]
     Active Substance: ASPIRIN
     Dosage: 81 MG
  5. ATORVASTATIN CALCIUM [Concomitant]
     Active Substance: ATORVASTATIN CALCIUM
     Dosage: 10 MG
  6. VITAMIN D3 [Concomitant]
     Active Substance: CHOLECALCIFEROL
     Dosage: 50000 IU
  7. VITAMIN B12 [Concomitant]
     Active Substance: CYANOCOBALAMIN
     Dosage: 1000 ?G
  8. FOLIC ACID [Concomitant]
     Active Substance: FOLIC ACID
     Dosage: 1 MG
  9. GUAIFENESIN [Concomitant]
     Active Substance: GUAIFENESIN
     Dosage: 600 MG
  10. LISINOPRIL [Concomitant]
     Active Substance: LISINOPRIL
     Dosage: 20 MG
  11. MEGARED PLANT OMEGA [Concomitant]
  12. POTASSIUM CHLORIDE [Concomitant]
     Active Substance: POTASSIUM CHLORIDE
     Dosage: 10 MEQ
  13. METFORMIN [Concomitant]
     Active Substance: METFORMIN HYDROCHLORIDE
     Dosage: 500 MG

REACTIONS (1)
  - Syncope [Recovered/Resolved]

NARRATIVE: CASE EVENT DATE: 20210817
